FAERS Safety Report 25539448 (Version 2)
Quarter: 2025Q3

REPORT INFORMATION
  Report Type: Report from Study
  Country: US (occurrence: US)
  Receive Date: 20250710
  Receipt Date: 20250901
  Transmission Date: 20251020
  Serious: Yes (Other)
  Sender: NOVARTIS
  Company Number: US-002147023-NVSC2025US019957

PATIENT
  Age: 83 Year
  Sex: Female

DRUGS (1)
  1. LEQVIO [Suspect]
     Active Substance: INCLISIRAN SODIUM
     Indication: Type IIa hyperlipidaemia
     Route: 065
     Dates: start: 20250206

REACTIONS (9)
  - Myocardial infarction [Unknown]
  - Appendicitis [Unknown]
  - Low density lipoprotein increased [Recovering/Resolving]
  - Blood cholesterol abnormal [Unknown]
  - High density lipoprotein increased [Recovering/Resolving]
  - Weight decreased [Unknown]
  - Bronchitis viral [Unknown]
  - Metabolic disorder [Unknown]
  - Therapeutic product effect decreased [Unknown]
